FAERS Safety Report 9281576 (Version 1)
Quarter: 2013Q2

REPORT INFORMATION
  Report Type: Spontaneous
  Country: DE (occurrence: DE)
  Receive Date: 20130509
  Receipt Date: 20130509
  Transmission Date: 20140414
  Serious: Yes (Hospitalization)
  Sender: FDA-Public Use
  Company Number: DE-ELI_LILLY_AND_COMPANY-DE201305000584

PATIENT
  Sex: Female

DRUGS (8)
  1. FORSTEO [Suspect]
     Indication: OSTEOPOROSIS
     Dosage: UNK, QD
     Route: 058
     Dates: start: 20120629, end: 20130224
  2. FORSTEO [Suspect]
     Dosage: UNK, QD
     Route: 058
     Dates: start: 20130415
  3. DECORTIN [Concomitant]
     Dosage: 5 MG, UNKNOWN
     Route: 065
  4. METOPROLOL [Concomitant]
     Dosage: UNK, UNKNOWN
     Route: 065
  5. SALBUTAMOL [Concomitant]
     Dosage: UNK, UNKNOWN
     Route: 065
  6. ESTRIOL [Concomitant]
     Dosage: UNK, UNKNOWN
     Route: 065
  7. TESTOSTERONE [Concomitant]
     Dosage: UNK, OTHER
     Route: 065
  8. ESTRADIOL [Concomitant]
     Dosage: UNK, QD
     Route: 065

REACTIONS (3)
  - Gait disturbance [Not Recovered/Not Resolved]
  - Fall [Not Recovered/Not Resolved]
  - Pelvic fracture [Not Recovered/Not Resolved]
